FAERS Safety Report 23755395 (Version 2)
Quarter: 2024Q2

REPORT INFORMATION
  Report Type: Spontaneous
  Country: US (occurrence: None)
  Receive Date: 20240418
  Receipt Date: 20240520
  Transmission Date: 20240716
  Serious: Yes (Other)
  Sender: FDA-Public Use
  Company Number: 2024A069878

PATIENT
  Sex: Female

DRUGS (2)
  1. TRUQAP [Suspect]
     Active Substance: CAPIVASERTIB
     Indication: Breast cancer stage IV
     Route: 048
  2. FULVESTRANT [Suspect]
     Active Substance: FULVESTRANT
     Route: 030

REACTIONS (7)
  - Metastases to liver [Unknown]
  - Plasma cell myeloma [Unknown]
  - Malaise [Unknown]
  - Rash [Unknown]
  - Abdominal discomfort [Unknown]
  - Myalgia [Unknown]
  - Fatigue [Unknown]
